FAERS Safety Report 9352661 (Version 1)
Quarter: 2013Q2

REPORT INFORMATION
  Report Type: Spontaneous
  Country: BE (occurrence: BE)
  Receive Date: 20130618
  Receipt Date: 20130618
  Transmission Date: 20140414
  Serious: Yes (Disabling)
  Sender: FDA-Public Use
  Company Number: BE-ROCHE-1237142

PATIENT
  Age: 62 Year
  Sex: Male
  Weight: 76.5 kg

DRUGS (13)
  1. MABTHERA [Suspect]
     Indication: CHRONIC LYMPHOCYTIC LEUKAEMIA
     Route: 042
     Dates: start: 20121108
  2. MABTHERA [Suspect]
     Route: 042
     Dates: end: 20130328
  3. ZOLEDRONIC ACID [Suspect]
     Indication: CHRONIC LYMPHOCYTIC LEUKAEMIA
     Route: 042
     Dates: start: 20100108
  4. ZOLEDRONIC ACID [Suspect]
     Route: 065
     Dates: start: 20110304
  5. ZOLEDRONIC ACID [Suspect]
     Route: 065
     Dates: start: 20120203
  6. EMCONCOR [Concomitant]
     Route: 048
  7. LIPITOR [Concomitant]
     Route: 048
  8. CARDIOASPIRINE [Concomitant]
     Route: 048
  9. ZOVIRAX [Concomitant]
     Route: 048
  10. EUSAPRIM FORTE [Concomitant]
     Route: 048
  11. BENDAMUSTINE [Concomitant]
     Route: 042
     Dates: start: 20121108, end: 20130328
  12. D-CURE [Concomitant]
     Route: 048
     Dates: start: 20080617
  13. CALCIUM CARBONATE [Concomitant]
     Route: 048
     Dates: start: 20080617

REACTIONS (1)
  - Osteonecrosis [Recovering/Resolving]
